FAERS Safety Report 7378445-X (Version None)
Quarter: 2011Q1

REPORT INFORMATION
  Report Type: 
  Country: None (occurrence: None)
  Receive Date: 20110328
  Receipt Date: 20110316
  Transmission Date: 20110831
  Serious: Yes (Other)
  Sender: FDA-Public Use
  Company Number: US-MERCK-1102USA02850

PATIENT
  Age: 54 Year
  Sex: Female
  Weight: 45 kg

DRUGS (15)
  1. TOPAMAX [Concomitant]
     Route: 048
  2. XANAX [Concomitant]
     Route: 048
  3. MAXALT [Concomitant]
     Route: 048
  4. ACIPHEX [Concomitant]
     Route: 048
  5. SINGULAIR [Suspect]
     Indication: COUGH
     Route: 048
     Dates: start: 20110120, end: 20110131
  6. STRATTERA [Concomitant]
     Route: 048
  7. SINGULAIR [Suspect]
     Indication: CONJUNCTIVITIS ALLERGIC
     Route: 048
     Dates: start: 20110120, end: 20110131
  8. PROZAC [Concomitant]
     Route: 048
  9. DEPLIN [Concomitant]
     Route: 065
  10. LEVOTHYROXINE SODIUM [Concomitant]
     Route: 065
  11. LEVOTHYROXINE SODIUM [Concomitant]
     Route: 065
  12. BONIVA [Concomitant]
     Route: 065
  13. SEROQUEL [Concomitant]
     Route: 065
  14. INTUNIV [Concomitant]
     Route: 065
  15. TEMAZEPAM [Concomitant]
     Route: 065

REACTIONS (4)
  - SUICIDAL IDEATION [None]
  - HEADACHE [None]
  - AGGRESSION [None]
  - MOOD ALTERED [None]
